FAERS Safety Report 10186984 (Version 2)
Quarter: 2014Q2

REPORT INFORMATION
  Report Type: Report from Study
  Country: CA (occurrence: CA)
  Receive Date: 20140522
  Receipt Date: 20140613
  Transmission Date: 20141212
  Serious: Yes (Life-Threatening, Other)
  Sender: FDA-Public Use
  Company Number: CA-BIOGENIDEC-2014BI043719

PATIENT
  Age: 57 Year
  Sex: Female

DRUGS (7)
  1. TECFIDERA [Suspect]
     Indication: RELAPSING-REMITTING MULTIPLE SCLEROSIS
     Route: 048
     Dates: start: 201403, end: 201404
  2. TECFIDERA [Suspect]
     Indication: RELAPSING-REMITTING MULTIPLE SCLEROSIS
     Route: 048
     Dates: start: 20140403, end: 20140504
  3. SYNTHROID [Concomitant]
     Indication: HYPERTHYROIDISM
  4. ATORVASTATIN [Concomitant]
     Indication: HYPERLIPIDAEMIA
  5. PAROXETINE [Concomitant]
     Indication: AFFECTIVE DISORDER
  6. LANSOPRAZOLE [Concomitant]
     Indication: MULTIPLE SCLEROSIS
  7. ALPRAZOLAM [Concomitant]
     Indication: ANXIETY

REACTIONS (2)
  - Prescribed underdose [Unknown]
  - Lung neoplasm malignant [Not Recovered/Not Resolved]
